FAERS Safety Report 8282982-3 (Version None)
Quarter: 2012Q2

REPORT INFORMATION
  Report Type: 
  Country: None (occurrence: None)
  Receive Date: 20120413
  Receipt Date: 20120330
  Transmission Date: 20120825
  Serious: Yes (Death, Other)
  Sender: FDA-Public Use
  Company Number: FR-CELGENEUS-056-21880-12040273

PATIENT

DRUGS (1)
  1. REVLIMID [Suspect]
     Route: 048

REACTIONS (6)
  - TUMOUR FLARE [None]
  - TUMOUR LYSIS SYNDROME [None]
  - NEUTROPENIA [None]
  - DEATH [None]
  - PANCYTOPENIA [None]
  - INFECTION [None]
